FAERS Safety Report 9848137 (Version 2)
Quarter: 2014Q1

REPORT INFORMATION
  Report Type: Spontaneous
  Country: US (occurrence: US)
  Receive Date: 20140128
  Receipt Date: 20140131
  Transmission Date: 20141002
  Serious: No
  Sender: FDA-Public Use
  Company Number: US-PFIZER INC-2014021984

PATIENT
  Age: 57 Year
  Sex: Female
  Weight: 93.88 kg

DRUGS (5)
  1. PROTONIX [Suspect]
     Dosage: UNK, 2X/DAY
  2. CELEXA [Concomitant]
     Indication: DEPRESSION
     Dosage: UNK, 1X/DAY
     Dates: start: 2013
  3. MYCOPHENOLATE MOFETIL [Concomitant]
     Dosage: 500 MG, 4X/DAY
  4. TACROLIMUS [Concomitant]
     Dosage: 1 MG, 3X/DAY
  5. BABY ASPIRIN [Concomitant]
     Dosage: UNK, 1X/DAY

REACTIONS (3)
  - Nausea [Unknown]
  - Malaise [Unknown]
  - Abdominal discomfort [Unknown]
